FAERS Safety Report 14918211 (Version 1)
Quarter: 2018Q2

REPORT INFORMATION
  Report Type: Spontaneous
  Country: US (occurrence: US)
  Receive Date: 20180502
  Receipt Date: 20180502
  Transmission Date: 20180711
  Serious: Yes (Hospitalization, Disabling)
  Sender: FDA-Public Use
  Company Number: None

PATIENT
  Age: 81 Year
  Sex: Female
  Weight: 82.55 kg

DRUGS (14)
  1. SERTRALINE [Concomitant]
     Active Substance: SERTRALINE HYDROCHLORIDE
  2. CLOPIDOGREL [Concomitant]
     Active Substance: CLOPIDOGREL BISULFATE
  3. METFORMIN [Concomitant]
     Active Substance: METFORMIN HYDROCHLORIDE
  4. PARACETAMOL [Concomitant]
     Active Substance: ACETAMINOPHEN
  5. TRULICITY [Suspect]
     Active Substance: DULAGLUTIDE
  6. BISOPROLOL [Concomitant]
     Active Substance: BISOPROLOL
  7. SIMVASTATIN. [Concomitant]
     Active Substance: SIMVASTATIN
  8. AMITRIPTYLINE [Concomitant]
     Active Substance: AMITRIPTYLINE
  9. COLECALCIFEROL [Concomitant]
     Active Substance: CHOLECALCIFEROL
  10. FELODIPINE. [Concomitant]
     Active Substance: FELODIPINE
  11. GLICLIZIDE [Concomitant]
  12. ISOSORBIDE MONONITRATE. [Concomitant]
     Active Substance: ISOSORBIDE MONONITRATE
  13. EPILIM [Concomitant]
     Active Substance: VALPROATE SODIUM
  14. LANSOPEROAZOLE [Concomitant]

REACTIONS (4)
  - Delusion [None]
  - Dementia Alzheimer^s type [None]
  - Condition aggravated [None]
  - Hallucination [None]

NARRATIVE: CASE EVENT DATE: 20170701
